FAERS Safety Report 9105710 (Version 1)
Quarter: 2013Q1

REPORT INFORMATION
  Report Type: Spontaneous
  Country: BE (occurrence: BE)
  Receive Date: 20130220
  Receipt Date: 20130220
  Transmission Date: 20140127
  Serious: Yes (Hospitalization)
  Sender: FDA-Public Use
  Company Number: PHHY2013BE015776

PATIENT
  Age: 55 Year
  Sex: Female

DRUGS (5)
  1. LEPONEX [Suspect]
     Dosage: UNK UKN, UNK
     Route: 048
  2. SOLIAN [Concomitant]
     Dosage: UNK UKN, UNK
     Route: 048
  3. ARTANE [Concomitant]
     Dosage: UNK UKN, UNK
     Route: 048
  4. DEPAKINE [Concomitant]
     Dosage: UNK UKN, UNK
     Route: 048
  5. RISPERDAL [Concomitant]
     Dosage: UNK UKN, UNK

REACTIONS (2)
  - Haematoma [Unknown]
  - Blood creatine phosphokinase increased [Unknown]
